FAERS Safety Report 16043284 (Version 2)
Quarter: 2019Q1

REPORT INFORMATION
  Report Type: Report from Study
  Country: US (occurrence: US)
  Receive Date: 20190306
  Receipt Date: 20190318
  Transmission Date: 20190418
  Serious: Yes (Hospitalization, Other)
  Sender: FDA-Public Use
  Company Number: PHEH2019US009310

PATIENT
  Age: 89 Year
  Sex: Male

DRUGS (1)
  1. PROMACTA [Suspect]
     Active Substance: ELTROMBOPAG OLAMINE
     Indication: IMMUNE THROMBOCYTOPENIC PURPURA
     Dosage: 50 MG, QD
     Route: 048
     Dates: start: 20190223, end: 20190226

REACTIONS (9)
  - Peripheral swelling [Recovering/Resolving]
  - Lacrimation increased [Unknown]
  - Joint swelling [Recovering/Resolving]
  - Tremor [Unknown]
  - Pain in extremity [Unknown]
  - Seizure [Recovering/Resolving]
  - Dyskinesia [Unknown]
  - Electrolyte imbalance [Unknown]
  - White blood cell count decreased [Unknown]

NARRATIVE: CASE EVENT DATE: 20190226
